FAERS Safety Report 7543372-1 (Version None)
Quarter: 2011Q2

REPORT INFORMATION
  Report Type: 
  Country: None (occurrence: None)
  Receive Date: 20110613
  Receipt Date: 20110606
  Transmission Date: 20111010
  Serious: Yes (Hospitalization, Other)
  Sender: FDA-Public Use
  Company Number: US-ACTELION-A-US2011-47513

PATIENT

DRUGS (1)
  1. TRACLEER [Suspect]
     Indication: PULMONARY ARTERIAL HYPERTENSION
     Dosage: UNK
     Route: 048
     Dates: start: 20100825

REACTIONS (6)
  - PULMONARY FIBROSIS [None]
  - SYSTEMIC LUPUS ERYTHEMATOSUS [None]
  - DYSPNOEA [None]
  - PLEURAL EFFUSION [None]
  - PAIN [None]
  - CHEST PAIN [None]
